FAERS Safety Report 10128604 (Version 2)
Quarter: 2017Q2

REPORT INFORMATION
  Report Type: Report from Study
  Country: US (occurrence: US)
  Receive Date: 20140428
  Receipt Date: 20170412
  Transmission Date: 20170829
  Serious: Yes (Other)
  Sender: FDA-Public Use
  Company Number: US-ROCHE-1387028

PATIENT
  Sex: Female

DRUGS (6)
  1. BEVACIZUMAB [Suspect]
     Active Substance: BEVACIZUMAB
     Indication: BREAST CANCER
     Dosage: ON DAY 1 AND 15 OF EACH 28 DAY CYCLE FOR 5 CYCLES ONLY, 6TH CYCLE OF NEOADJUVANT CHEMOTHERAPY (NCT)
     Route: 065
  2. BEVACIZUMAB [Suspect]
     Active Substance: BEVACIZUMAB
     Dosage: IF THE PATIENT WAS TREATED WITH AN ADJUVANT ANTHRACYCLINE-CONTAINING REGIMEN, THEN BEVACIZUMAB WAS A
     Route: 042
  3. NAB-PACLITAXEL [Suspect]
     Active Substance: PACLITAXEL
     Indication: BREAST CANCER
     Dosage: OVER 30 MINUTES WEEKLY.
     Route: 042
  4. DOXORUBICIN [Suspect]
     Active Substance: DOXORUBICIN
     Indication: BREAST CANCER
     Dosage: POSTSURGICAL ADJUVANT CHEMOTHERAPY OF 4 CYCLES
     Route: 065
  5. CARBOPLATIN. [Suspect]
     Active Substance: CARBOPLATIN
     Indication: BREAST CANCER
     Dosage: CARBOPLATIN AREA UNDER THE CURVE (AUC) 2 ON DAY 1, 8 AND 15
     Route: 042
  6. CYCLOPHOSPHAMIDE. [Suspect]
     Active Substance: CYCLOPHOSPHAMIDE
     Indication: BREAST CANCER
     Dosage: POSTSURGICAL ADJUVANT CHEMOTHERAPY OF 4 CYCLES
     Route: 065

REACTIONS (16)
  - Hypertension [Unknown]
  - Nausea [Unknown]
  - Wound complication [Unknown]
  - Neutropenia [Unknown]
  - Leukopenia [Unknown]
  - Fatigue [Unknown]
  - Infection [Unknown]
  - Skin necrosis [Unknown]
  - Thrombocytopenia [Unknown]
  - Anaemia [Unknown]
  - Constipation [Unknown]
  - Syncope [Unknown]
  - Neuropathy peripheral [Unknown]
  - Hypersensitivity [Unknown]
  - Febrile neutropenia [Unknown]
  - Depressed mood [Unknown]
